FAERS Safety Report 15402491 (Version 1)
Quarter: 2018Q3

REPORT INFORMATION
  Report Type: Spontaneous
  Country: US (occurrence: US)
  Receive Date: 20180916
  Receipt Date: 20180916
  Transmission Date: 20181010
  Serious: Yes (Hospitalization)
  Sender: FDA-Public Use
  Company Number: None

PATIENT
  Age: 41 Year
  Sex: Female
  Weight: 56.25 kg

DRUGS (2)
  1. THYROGEN [Suspect]
     Active Substance: THYROTROPIN ALFA
     Indication: THYROID CANCER
     Dosage: ?          OTHER FREQUENCY:1 INJ FOR 2 DAYS;?
     Route: 030
     Dates: start: 20180910, end: 20180911
  2. ARMOUR THYROID [Concomitant]
     Active Substance: THYROID, PORCINE

REACTIONS (11)
  - Blood pressure increased [None]
  - Presyncope [None]
  - Palpitations [None]
  - Dizziness [None]
  - Back pain [None]
  - Chest discomfort [None]
  - Dyspnoea [None]
  - Asthenia [None]
  - Chest pain [None]
  - Heart rate increased [None]
  - Nausea [None]

NARRATIVE: CASE EVENT DATE: 20180912
